FAERS Safety Report 9999256 (Version 1)
Quarter: 2014Q1

REPORT INFORMATION
  Report Type: Report from Study
  Country: MX (occurrence: MX)
  Receive Date: 20140312
  Receipt Date: 20140312
  Transmission Date: 20141002
  Serious: Yes (Other)
  Sender: FDA-Public Use
  Company Number: MX-ROCHE-1361176

PATIENT
  Age: 55 Year
  Sex: Female
  Weight: 49 kg

DRUGS (4)
  1. VINORELBINA [Suspect]
     Indication: BREAST CANCER
     Route: 065
  2. HERCEPTIN [Suspect]
     Indication: BREAST CANCER
     Route: 065
  3. PACLITAXEL [Concomitant]
     Indication: BREAST CANCER
     Route: 065
  4. GEMCITABINE [Concomitant]
     Indication: BREAST CANCER

REACTIONS (2)
  - Disease progression [Unknown]
  - Disease progression [Unknown]
